FAERS Safety Report 10764965 (Version 2)
Quarter: 2015Q1

REPORT INFORMATION
  Report Type: Spontaneous
  Country: US (occurrence: US)
  Receive Date: 20150205
  Receipt Date: 20150326
  Transmission Date: 20150721
  Serious: Yes (Other)
  Sender: FDA-Public Use
  Company Number: US-PFIZER INC-2015044339

PATIENT
  Age: 66 Year
  Sex: Male

DRUGS (4)
  1. SUTENT [Suspect]
     Active Substance: SUNITINIB MALATE
     Dosage: 50 MG, CYCLIC (28 ON/14 OFF)
     Dates: start: 20141203, end: 20150317
  2. NORVASC [Concomitant]
     Active Substance: AMLODIPINE BESYLATE
     Dosage: UNK
  3. NORCO [Concomitant]
     Active Substance: ACETAMINOPHEN\HYDROCODONE BITARTRATE
     Dosage: UNK
  4. PRILOSEC [Concomitant]
     Active Substance: OMEPRAZOLE MAGNESIUM

REACTIONS (18)
  - Oral pain [Unknown]
  - Glossodynia [Unknown]
  - Epistaxis [Unknown]
  - Stomatitis [Unknown]
  - Vomiting [Unknown]
  - Dysphagia [Unknown]
  - Pyrexia [Unknown]
  - Chills [Unknown]
  - Weight decreased [Unknown]
  - Gingival pain [Unknown]
  - Nausea [Unknown]
  - Constipation [Recovered/Resolved]
  - Dysgeusia [Unknown]
  - Decreased appetite [Unknown]
  - Haemorrhage [Unknown]
  - Abdominal pain upper [Unknown]
  - Hypertension [Unknown]
  - Dry mouth [Unknown]
